FAERS Safety Report 12118865 (Version 1)
Quarter: 2016Q1

REPORT INFORMATION
  Report Type: Spontaneous
  Country: CA (occurrence: CA)
  Receive Date: 20160226
  Receipt Date: 20160226
  Transmission Date: 20160526
  Serious: Yes (Other)
  Sender: FDA-Public Use
  Company Number: CA-TEVA-637518ACC

PATIENT
  Age: 75 Year
  Sex: Female

DRUGS (6)
  1. FERROUS GLUCONATE [Concomitant]
     Active Substance: FERROUS GLUCONATE
  2. METOPROLOL. [Concomitant]
     Active Substance: METOPROLOL
  3. RISPERIDONE. [Suspect]
     Active Substance: RISPERIDONE
     Indication: DELUSION
  4. LEVOTHYROXINE. [Concomitant]
     Active Substance: LEVOTHYROXINE
  5. RISPERIDONE. [Suspect]
     Active Substance: RISPERIDONE
     Indication: PSYCHOTIC DISORDER
     Dosage: 36 MILLIGRAM DAILY;
     Route: 065
  6. RISPERIDONE. [Suspect]
     Active Substance: RISPERIDONE
     Indication: DEPRESSION

REACTIONS (2)
  - Blood creatine phosphokinase increased [Recovered/Resolved]
  - Mental impairment [Recovered/Resolved]
